FAERS Safety Report 8116277-5 (Version None)
Quarter: 2012Q1

REPORT INFORMATION
  Report Type: 
  Country: None (occurrence: None)
  Receive Date: 20120206
  Receipt Date: 20120126
  Transmission Date: 20120608
  Serious: Yes (Death, Other)
  Sender: FDA-Public Use
  Company Number: US-JNJFOC-20120104685

PATIENT
  Sex: Male
  Weight: 86.18 kg

DRUGS (3)
  1. MERCAPTOPURINE [Concomitant]
     Indication: CROHN'S DISEASE
  2. MESALAMINE [Concomitant]
     Indication: CROHN'S DISEASE
  3. INFLIXIMAB, RECOMBINANT [Suspect]
     Indication: CROHN'S DISEASE
     Route: 042

REACTIONS (5)
  - DEPRESSION [None]
  - CARDIAC FAILURE [None]
  - RESPIRATORY FAILURE [None]
  - HYPOTENSION [None]
  - LUNG DISORDER [None]
